FAERS Safety Report 10025268 (Version 1)
Quarter: 2014Q1

REPORT INFORMATION
  Report Type: Spontaneous
  Country: JP (occurrence: JP)
  Receive Date: 20140320
  Receipt Date: 20140320
  Transmission Date: 20141002
  Serious: Yes (Other)
  Sender: FDA-Public Use
  Company Number: PHHY2014JP032618

PATIENT
  Sex: Male

DRUGS (4)
  1. ZOLEDRONATE [Suspect]
     Dosage: 4 MG, PER MONTH
  2. INTERFERON ALFA [Concomitant]
  3. HYDROCORTISONE [Concomitant]
     Dosage: 10 MG, UNK
  4. HCG [Concomitant]
     Dosage: 5000 IU, THREE TIMES PER WEEK

REACTIONS (1)
  - Osteonecrosis of jaw [Unknown]
